FAERS Safety Report 6113212-6 (Version None)
Quarter: 2009Q1

REPORT INFORMATION
  Report Type: 
  Country: None (occurrence: None)
  Receive Date: 20090312
  Receipt Date: 20090309
  Transmission Date: 20090719
  Serious: Yes (Other)
  Sender: FDA-Public Use
  Company Number: BR-JNJFOC-20090302665

PATIENT
  Sex: Female
  Weight: 70 kg

DRUGS (4)
  1. ORTHO EVRA [Suspect]
     Indication: MENSTRUAL DISORDER
     Route: 062
  2. ORTHO EVRA [Suspect]
     Indication: PREMENSTRUAL SYNDROME
     Route: 062
  3. ORTHO EVRA [Suspect]
     Indication: CONTRACEPTION
     Dosage: ETHINYL ESTRADIOL 0.6 MG/ NORELGESTROMIN 6 MG
     Route: 062
  4. ARADOIS [Concomitant]
     Indication: HYPERTENSION

REACTIONS (5)
  - DRUG ADMINISTERED AT INAPPROPRIATE SITE [None]
  - INAPPROPRIATE SCHEDULE OF DRUG ADMINISTRATION [None]
  - NEPHROLITHIASIS [None]
  - OFF LABEL USE [None]
  - PRODUCT QUALITY ISSUE [None]
